FAERS Safety Report 11077110 (Version 2)
Quarter: 2015Q2

REPORT INFORMATION
  Report Type: Spontaneous
  Country: US (occurrence: US)
  Receive Date: 20150429
  Receipt Date: 20150525
  Transmission Date: 20150821
  Serious: No
  Sender: FDA-Public Use
  Company Number: US-JNJFOC-20140418358

PATIENT
  Age: 69 Year
  Sex: Male
  Weight: 63.05 kg

DRUGS (2)
  1. IMODIUM MULTI-SYMPTOM RELIEF [Suspect]
     Active Substance: DIMETHICONE\LOPERAMIDE HYDROCHLORIDE
     Indication: DIARRHOEA
     Dosage: 1-4 TIMES DAY + NO MORE THAN 6 CAP DAY
     Route: 048
     Dates: start: 20140418, end: 20140421
  2. IMODIUM MULTI-SYMPTOM RELIEF [Suspect]
     Active Substance: DIMETHICONE\LOPERAMIDE HYDROCHLORIDE
     Route: 048

REACTIONS (1)
  - Laceration [Recovered/Resolved]

NARRATIVE: CASE EVENT DATE: 20140418
